FAERS Safety Report 10448704 (Version 1)
Quarter: 2014Q3

REPORT INFORMATION
  Report Type: Spontaneous
  Country: US (occurrence: US)
  Receive Date: 20140912
  Receipt Date: 20140912
  Transmission Date: 20150326
  Serious: Yes (Hospitalization)
  Sender: FDA-Public Use
  Company Number: US-ACCORD-025837

PATIENT
  Age: 44 Year
  Sex: Female

DRUGS (3)
  1. LISINOPRIL. [Suspect]
     Active Substance: LISINOPRIL
     Dosage: UNKNOWN QUANTITY OF?40 MG
  2. ATENOLOL/ATENOLOL HYDROCHLORIDE [Suspect]
     Active Substance: ATENOLOL
  3. CHLORTALIDONE [Suspect]
     Active Substance: CHLORTHALIDONE

REACTIONS (5)
  - Overdose [Unknown]
  - Unresponsive to stimuli [Recovered/Resolved]
  - Renal failure [Recovered/Resolved]
  - Cardiogenic shock [Recovered/Resolved]
  - Acute respiratory distress syndrome [Recovered/Resolved]
